FAERS Safety Report 9355606 (Version 1)
Quarter: 2013Q2

REPORT INFORMATION
  Report Type: Spontaneous
  Country: FR (occurrence: FR)
  Receive Date: 20130619
  Receipt Date: 20130619
  Transmission Date: 20140414
  Serious: Yes (Other)
  Sender: FDA-Public Use
  Company Number: FR-ASTELLAS-2013EU005030

PATIENT
  Age: 43 Year
  Sex: Male

DRUGS (7)
  1. TACROLIMUS SYSTEMIC [Suspect]
     Indication: RENAL TRANSPLANT
     Dosage: UNK
     Route: 065
  2. MYCOPHENOLATE MOFETIL [Suspect]
     Indication: RENAL TRANSPLANT
     Dosage: UNK
     Route: 065
  3. BASILIXIMAB [Concomitant]
     Dosage: UNK
     Route: 065
  4. ZIDOVUDINE [Concomitant]
     Dosage: UNK
     Route: 065
  5. DIDANOSINE [Concomitant]
     Dosage: UNK
     Route: 065
  6. LOPINAVIR [Concomitant]
     Dosage: UNK
     Route: 065
  7. RITONAVIR [Concomitant]
     Dosage: UNK
     Route: 065

REACTIONS (4)
  - Ureteric stenosis [Unknown]
  - Nephropathy toxic [Unknown]
  - Renal arteriosclerosis [Unknown]
  - Polyomavirus-associated nephropathy [Unknown]
